FAERS Safety Report 17928846 (Version 1)
Quarter: 2020Q2

REPORT INFORMATION
  Report Type: Spontaneous
  Country: US (occurrence: US)
  Receive Date: 20200622
  Receipt Date: 20200622
  Transmission Date: 20200714
  Serious: Yes (Hospitalization, Other)
  Sender: FDA-Public Use
  Company Number: None

PATIENT
  Age: 79 Year
  Sex: Male

DRUGS (1)
  1. ATORVASTATIN (ATORVASTATIN CA 80MG TAB) [Suspect]
     Active Substance: ATORVASTATIN
     Indication: HYPERLIPIDAEMIA
     Route: 048
     Dates: start: 20190725, end: 20200304

REACTIONS (5)
  - Blood creatine phosphokinase increased [None]
  - Myalgia [None]
  - Liver injury [None]
  - Rhabdomyolysis [None]
  - Transaminases increased [None]
